FAERS Safety Report 24662308 (Version 6)
Quarter: 2025Q1

REPORT INFORMATION
  Report Type: Report from Study
  Country: US (occurrence: US)
  Receive Date: 20241125
  Receipt Date: 20250218
  Transmission Date: 20250409
  Serious: Yes (Other)
  Sender: SUNOVION
  Company Number: US-SUMITOMO PHARMA SWITZERLAND GMBH-2024SPA005194

PATIENT

DRUGS (1)
  1. ORGOVYX [Suspect]
     Active Substance: RELUGOLIX
     Indication: Prostate cancer
     Dosage: 120 MG, QD
     Route: 048
     Dates: start: 20241108

REACTIONS (11)
  - Rectal haemorrhage [Unknown]
  - Malaise [Unknown]
  - Dyspnoea [Unknown]
  - Cough [Unknown]
  - Chest pain [Unknown]
  - Abdominal pain upper [Recovering/Resolving]
  - Weight increased [Not Recovered/Not Resolved]
  - Fatigue [Unknown]
  - Blood cholesterol increased [Unknown]
  - Asthenia [Unknown]
  - Incorrect dose administered [Unknown]
